FAERS Safety Report 4796587-X (Version None)
Quarter: 2005Q4

REPORT INFORMATION
  Report Type: 
  Country: None (occurrence: None)
  Receive Date: 20051007
  Receipt Date: 20050923
  Transmission Date: 20060501
  Serious: Yes (Death)
  Sender: FDA-Public Use
  Company Number: 02100-USA-04-0188

PATIENT
  Age: 60 Year
  Sex: Female

DRUGS (2)
  1. PLETAL [Suspect]
     Indication: THROMBOSIS IN DEVICE
     Dosage: 100 MG BID ORAL
     Route: 048
     Dates: start: 20030723, end: 20030723
  2. ASPIRIN [Concomitant]

REACTIONS (3)
  - CARDIAC TAMPONADE [None]
  - PERICARDIAL EFFUSION [None]
  - PROCEDURAL COMPLICATION [None]
